FAERS Safety Report 9272965 (Version 1)
Quarter: 2013Q2

REPORT INFORMATION
  Report Type: Spontaneous
  Country: US (occurrence: US)
  Receive Date: 20130506
  Receipt Date: 20130506
  Transmission Date: 20140414
  Serious: Yes (Other)
  Sender: FDA-Public Use
  Company Number: US-PFIZER INC-2013137443

PATIENT
  Age: 47 Year
  Sex: Female

DRUGS (1)
  1. EFFEXOR XR [Suspect]
     Dosage: 150 MG, 1X/DAY (QAM)
     Route: 048

REACTIONS (5)
  - Tooth abscess [Unknown]
  - Depression [Unknown]
  - Blood pressure increased [Unknown]
  - Toothache [Unknown]
  - Anxiety [Unknown]
